FAERS Safety Report 15397140 (Version 1)
Quarter: 2018Q3

REPORT INFORMATION
  Report Type: Other
  Country: US (occurrence: US)
  Receive Date: 20180918
  Receipt Date: 20180918
  Transmission Date: 20181010
  Serious: No
  Sender: FDA-Public Use
  Company Number: US-LEADIANT BIOSCIENCES INC-2018STPI000373

PATIENT
  Sex: Female

DRUGS (7)
  1. LEVETIRACETAM. [Concomitant]
     Active Substance: LEVETIRACETAM
  2. MATULANE [Suspect]
     Active Substance: PROCARBAZINE HYDROCHLORIDE
     Indication: BRAIN NEOPLASM MALIGNANT
     Dosage: 50 MG, Q6 HOUR TIMES 6 DOSES
     Route: 048
     Dates: start: 20180301
  3. METOCLOPRAMIDE. [Concomitant]
     Active Substance: METOCLOPRAMIDE
  4. TABLOID [Concomitant]
     Active Substance: THIOGUANINE
  5. GLEOSTINE [Concomitant]
     Active Substance: LOMUSTINE
  6. KEPPRA [Concomitant]
     Active Substance: LEVETIRACETAM
  7. DONEPEZIL. [Concomitant]
     Active Substance: DONEPEZIL

REACTIONS (1)
  - Fatigue [Not Recovered/Not Resolved]
